FAERS Safety Report 22305031 (Version 7)
Quarter: 2025Q1

REPORT INFORMATION
  Report Type: Report from Study
  Country: US (occurrence: US)
  Receive Date: 20230510
  Receipt Date: 20250107
  Transmission Date: 20250408
  Serious: Yes (Other)
  Sender: TAKEDA
  Company Number: US-TAKEDA-2022TUS081636

PATIENT
  Sex: Male
  Weight: 97.959 kg

DRUGS (18)
  1. HUMAN IMMUNOGLOBULIN G [Suspect]
     Active Substance: HUMAN IMMUNOGLOBULIN G
     Indication: Immunodeficiency common variable
     Dosage: 10 GRAM, 1/WEEK
     Dates: start: 20221109
  2. HUMAN IMMUNOGLOBULIN G [Suspect]
     Active Substance: HUMAN IMMUNOGLOBULIN G
     Dosage: 12 GRAM, 1/WEEK
  3. DIPHENHYDRAMINE HYDROCHLORIDE [Concomitant]
     Active Substance: DIPHENHYDRAMINE HYDROCHLORIDE
  4. FENOFIBRATE [Concomitant]
     Active Substance: FENOFIBRATE
  5. SYMBICORT [Concomitant]
     Active Substance: BUDESONIDE\FORMOTEROL FUMARATE DIHYDRATE
  6. EPINEPHRINE [Concomitant]
     Active Substance: EPINEPHRINE
  7. SPIRIVA RESPIMAT [Concomitant]
     Active Substance: TIOTROPIUM BROMIDE
  8. VANCOMYCIN HYDROCHLORIDE [Concomitant]
     Active Substance: VANCOMYCIN HYDROCHLORIDE
  9. ACETAMINOPHEN [Concomitant]
     Active Substance: ACETAMINOPHEN
  10. ALBUTEROL SULFATE [Concomitant]
     Active Substance: ALBUTEROL SULFATE
  11. BENADRYL [Concomitant]
     Active Substance: DIPHENHYDRAMINE HYDROCHLORIDE
  12. GENTAMICIN SULFATE [Concomitant]
     Active Substance: GENTAMICIN SULFATE
  13. Lmx [Concomitant]
  14. CLOTRIMAZOLE [Concomitant]
     Active Substance: CLOTRIMAZOLE
  15. FUROSEMIDE [Concomitant]
     Active Substance: FUROSEMIDE
  16. ATORVASTATIN CALCIUM [Concomitant]
     Active Substance: ATORVASTATIN CALCIUM
  17. BREZTRI [Concomitant]
     Active Substance: BUDESONIDE\FORMOTEROL\GLYCOPYRROLATE
  18. EXCEDRIN TENSION HEADACHE [Concomitant]
     Active Substance: ACETAMINOPHEN\CAFFEINE

REACTIONS (8)
  - Pneumonia [Unknown]
  - Insurance issue [Recovering/Resolving]
  - Sinusitis [Unknown]
  - Fluid retention [Recovered/Resolved]
  - Product dose omission issue [Recovering/Resolving]
  - Chronic sinusitis [Unknown]
  - Muscle spasms [Unknown]
  - Abdominal distension [Recovered/Resolved]
